FAERS Safety Report 8146859-6 (Version None)
Quarter: 2012Q1

REPORT INFORMATION
  Report Type: 
  Country: None (occurrence: None)
  Receive Date: 20120217
  Receipt Date: 20110811
  Transmission Date: 20120608
  Serious: No
  Sender: FDA-Public Use
  Company Number: US-ABBOTT-11P-163-0845593-00

PATIENT
  Sex: Male
  Weight: 102.15 kg

DRUGS (5)
  1. ASPIRIN [Concomitant]
     Indication: PRODUCT USED FOR UNKNOWN INDICATION
     Dosage: PRIOR TO SIMCOR
  2. PLAVIX [Concomitant]
     Indication: PRODUCT USED FOR UNKNOWN INDICATION
  3. METOPROLOL TARTRATE [Concomitant]
     Indication: PRODUCT USED FOR UNKNOWN INDICATION
  4. SIMCOR [Suspect]
     Indication: ARTERIOSCLEROSIS
     Dosage: 500/20 MG AT NIGHT
  5. FENOFIBRATE [Concomitant]
     Indication: PRODUCT USED FOR UNKNOWN INDICATION

REACTIONS (6)
  - FLUSHING [None]
  - HEART RATE INCREASED [None]
  - GENERALISED ERYTHEMA [None]
  - MIDDLE INSOMNIA [None]
  - SKIN BURNING SENSATION [None]
  - GAIT DISTURBANCE [None]
